FAERS Safety Report 22540875 (Version 3)
Quarter: 2023Q2

REPORT INFORMATION
  Report Type: Report from Study
  Country: US (occurrence: US)
  Receive Date: 20230609
  Receipt Date: 20230627
  Transmission Date: 20230722
  Serious: Yes (Death, Hospitalization)
  Sender: FDA-Public Use
  Company Number: US-PFIZER INC-PV202300100241

PATIENT
  Age: 46 Year
  Sex: Female

DRUGS (6)
  1. BEVACIZUMAB-BVZR [Suspect]
     Active Substance: BEVACIZUMAB-BVZR
     Dosage: 10 MG/KG
     Dates: start: 20230221, end: 20230307
  2. ATEZOLIZUMAB [Suspect]
     Active Substance: ATEZOLIZUMAB
     Dosage: 1680 MG
     Dates: start: 20230221, end: 20230221
  3. SENOKOT [Concomitant]
     Active Substance: SENNOSIDES
     Indication: Constipation
     Dosage: 8.6 MG, 2X/DAY
     Route: 048
     Dates: start: 20221212
  4. VENLAFAXINE [Concomitant]
     Active Substance: VENLAFAXINE HYDROCHLORIDE
     Indication: Depression
     Dosage: 75 MG, 1X/DAY
     Route: 048
     Dates: start: 20230116
  5. OLANZAPINE [Concomitant]
     Active Substance: OLANZAPINE
     Indication: Nausea
     Dosage: 2.5 MG, 1X/DAY
     Route: 048
     Dates: start: 20230116
  6. ASPIRIN [Concomitant]
     Active Substance: ASPIRIN
     Indication: Pain
     Dosage: 81 MG, 1X/DAY
     Route: 048
     Dates: start: 20230201

REACTIONS (1)
  - Embolism [Fatal]

NARRATIVE: CASE EVENT DATE: 20230308
